FAERS Safety Report 8243762-8 (Version None)
Quarter: 2012Q1

REPORT INFORMATION
  Report Type: 
  Country: None (occurrence: None)
  Receive Date: 20120329
  Receipt Date: 20110818
  Transmission Date: 20120608
  Serious: No
  Sender: FDA-Public Use
  Company Number: US-MYLANLABS-2011S1017505

PATIENT
  Age: 37 Year
  Sex: Female

DRUGS (2)
  1. EMSAM [Suspect]
     Indication: DEPRESSION
     Dosage: QW
     Route: 062
     Dates: start: 20110517
  2. LORAZEPAM [Concomitant]
     Indication: INSOMNIA
     Dosage: ALSO TAKING FOR ANXIETY.
     Route: 048

REACTIONS (1)
  - DRUG SCREEN POSITIVE [None]
